FAERS Safety Report 8142669-4 (Version None)
Quarter: 2012Q1

REPORT INFORMATION
  Report Type: 
  Country: None (occurrence: None)
  Receive Date: 20120216
  Receipt Date: 20120214
  Transmission Date: 20120608
  Serious: Yes (Other)
  Sender: FDA-Public Use
  Company Number: US-PFIZER INC-2012040458

PATIENT
  Sex: Male

DRUGS (5)
  1. NEURONTIN [Suspect]
     Dosage: 900 MG, 2X/DAY
  2. HYDROCODONE [Concomitant]
     Dosage: UNK
  3. NEURONTIN [Suspect]
     Indication: SLEEP DISORDER
     Dosage: 900 MG, 4X/DAY
     Dates: start: 20020101
  4. NEURONTIN [Suspect]
     Dosage: 900 MG, 4X/DAY
  5. KLONOPIN [Concomitant]
     Dosage: UNK

REACTIONS (9)
  - EYE DISORDER [None]
  - SWOLLEN TONGUE [None]
  - FEELING ABNORMAL [None]
  - CATARACT [None]
  - BRADYPHRENIA [None]
  - SLEEP DISORDER [None]
  - MULTIPLE CHEMICAL SENSITIVITY [None]
  - HAIR TEXTURE ABNORMAL [None]
  - NERVOUS SYSTEM DISORDER [None]
